FAERS Safety Report 7411624-1 (Version None)
Quarter: 2011Q2

REPORT INFORMATION
  Report Type: 
  Country: None (occurrence: None)
  Receive Date: 20110413
  Receipt Date: 20110404
  Transmission Date: 20111010
  Serious: Yes (Hospitalization, Other)
  Sender: FDA-Public Use
  Company Number: GB-SANOFI-AVENTIS-2011SA003797

PATIENT
  Age: 58 Year
  Sex: Male
  Weight: 92.5 kg

DRUGS (10)
  1. ADIZEM - SLOW RELEASE [Concomitant]
     Indication: BLOOD PRESSURE
     Route: 048
  2. LATANOPROST [Concomitant]
     Indication: GLAUCOMA
     Dates: start: 20080101
  3. MULTAQ [Suspect]
     Indication: ATRIAL FIBRILLATION
     Route: 048
     Dates: start: 20101220
  4. WARFARIN [Concomitant]
     Indication: ATRIAL FIBRILLATION
  5. ADIZEM - SLOW RELEASE [Concomitant]
     Indication: ATRIAL FIBRILLATION
     Route: 048
  6. VENTOLIN [Concomitant]
     Indication: ASTHMA
     Dates: start: 19560101
  7. ALVERINE CITRATE [Concomitant]
     Indication: IRRITABLE BOWEL SYNDROME
     Route: 048
     Dates: start: 20100607
  8. BECLOMETASONE DIPROPIONATE [Concomitant]
     Indication: ASTHMA
     Dates: start: 19560101
  9. CANDESARTAN [Concomitant]
     Route: 048
  10. SIMVASTATIN [Concomitant]
     Route: 048
     Dates: start: 20101119

REACTIONS (2)
  - LOWER GASTROINTESTINAL HAEMORRHAGE [None]
  - HAEMOGLOBIN DECREASED [None]
